FAERS Safety Report 16381066 (Version 2)
Quarter: 2019Q2

REPORT INFORMATION
  Report Type: Spontaneous
  Country: GB (occurrence: GB)
  Receive Date: 20190602
  Receipt Date: 20190619
  Transmission Date: 20190711
  Serious: Yes (Other)
  Sender: FDA-Public Use
  Company Number: GB-BEH-2019102916

PATIENT
  Age: 30 Year
  Sex: Male

DRUGS (3)
  1. HUMAN IMMUNOGLOBULIN IV (INN) [Suspect]
     Active Substance: HUMAN IMMUNOGLOBULIN G
     Indication: ACQUIRED EPIDERMOLYSIS BULLOSA
     Route: 042
  2. MYCOPHENOLATE MOFETIL. [Concomitant]
     Active Substance: MYCOPHENOLATE MOFETIL
     Indication: ACQUIRED EPIDERMOLYSIS BULLOSA
     Route: 065
  3. DAPSONE. [Concomitant]
     Active Substance: DAPSONE
     Indication: ACQUIRED EPIDERMOLYSIS BULLOSA
     Route: 065

REACTIONS (4)
  - Haemolytic anaemia [Unknown]
  - Haemoglobin decreased [Unknown]
  - No adverse event [Unknown]
  - Product use in unapproved indication [Unknown]
